FAERS Safety Report 10196440 (Version 1)
Quarter: 2014Q2

REPORT INFORMATION
  Report Type: Spontaneous
  Country: US (occurrence: None)
  Receive Date: 20140523
  Receipt Date: 20140523
  Transmission Date: 20141212
  Serious: Yes (Death, Hospitalization)
  Sender: FDA-Public Use
  Company Number: None

PATIENT
  Age: 75 Year
  Sex: Male

DRUGS (2)
  1. DOXYCYCLINE [Suspect]
     Dates: start: 20120911, end: 20121001
  2. ATORVASTATIN [Concomitant]

REACTIONS (13)
  - Drug-induced liver injury [None]
  - Decreased appetite [None]
  - Malaise [None]
  - Aspartate aminotransferase increased [None]
  - Alanine aminotransferase increased [None]
  - Blood alkaline phosphatase increased [None]
  - Blood bilirubin increased [None]
  - Jaundice [None]
  - Cholelithiasis [None]
  - Hepatic steatosis [None]
  - Hepatic encephalopathy [None]
  - Fatigue [None]
  - Biopsy liver abnormal [None]
